FAERS Safety Report 8919197 (Version 1)
Quarter: 2012Q4

REPORT INFORMATION
  Report Type: 
  Country: US (occurrence: US)
  Receive Date: 20121121
  Receipt Date: 20121121
  Transmission Date: 20130627
  Serious: Yes (Hospitalization)
  Sender: FDA-Public Use
  Company Number: US-B.I. PHARMACEUTICALS,INC./RIDGEFIELD-2012-BI-00661BP

PATIENT
  Age: 65 Year
  Sex: Female
  Weight: 100 kg

DRUGS (4)
  1. SPIRIVA [Suspect]
     Indication: SARCOIDOSIS
     Dosage: 18 mcg
     Route: 055
     Dates: start: 201206
  2. WARFARIN [Concomitant]
     Indication: ATRIAL FIBRILLATION
     Dosage: 2.5 mg
     Route: 048
  3. TAZTIA XT [Concomitant]
     Indication: ATRIAL FIBRILLATION
     Dosage: 360 mg
     Route: 048
  4. LOSARTAN [Concomitant]
     Indication: HYPERTENSION
     Dosage: 50 mg
     Route: 048

REACTIONS (2)
  - Hernia [Recovered/Resolved]
  - Hallucination [Recovered/Resolved]
